FAERS Safety Report 5899773-0 (Version None)
Quarter: 2008Q3

REPORT INFORMATION
  Report Type: 
  Country: None (occurrence: None)
  Receive Date: 20080926
  Receipt Date: 20080919
  Transmission Date: 20090109
  Serious: Yes (Other)
  Sender: FDA-Public Use
  Company Number: US-ASTRAZENECA-2008UW19706

PATIENT
  Sex: Female

DRUGS (1)
  1. ARIMIDEX [Suspect]
     Dosage: TWICE A DAY FOR A TOTAL OF SEVEN PILLS
     Route: 064

REACTIONS (2)
  - DELAYED CLOSURE OF CRANIAL SUTURES [None]
  - STRIDOR [None]
